FAERS Safety Report 7449147-6 (Version None)
Quarter: 2011Q2

REPORT INFORMATION
  Report Type: 
  Country: None (occurrence: None)
  Receive Date: 20110502
  Receipt Date: 20110421
  Transmission Date: 20111010
  Serious: Yes (Death)
  Sender: FDA-Public Use
  Company Number: US-BIOGENIDEC-2010BI044518

PATIENT
  Age: 44 Year
  Sex: Female
  Weight: 99 kg

DRUGS (8)
  1. TYSABRI [Suspect]
     Indication: MULTIPLE SCLEROSIS
     Route: 042
     Dates: start: 20080423
  2. NUVIGIL [Concomitant]
     Indication: FATIGUE
  3. ALLEGRA [Concomitant]
  4. OPANA [Concomitant]
  5. TIZANIDINE [Concomitant]
     Indication: SLEEP DISORDER
  6. ADVAIR DISKUS 100/50 [Concomitant]
     Indication: ASTHMA
  7. HYDROMORPHONE [Concomitant]
  8. LUNESTA [Concomitant]

REACTIONS (1)
  - CORONARY ARTERY INSUFFICIENCY [None]
